FAERS Safety Report 9166814 (Version 1)
Quarter: 2012Q4

REPORT INFORMATION
  Report Type: 
  Country: US (occurrence: US)
  Receive Date: 20121101
  Receipt Date: 20121101
  Transmission Date: 20130627
  Serious: Yes (Hospitalization, Other)
  Sender: FDA-Public Use
  Company Number: US-RB-046013-12

PATIENT
  Age: 49 Year
  Sex: Male

DRUGS (1)
  1. MUCINEX MAXIMUM STRENGTH [Suspect]
     Indication: COUGH
     Route: 048

REACTIONS (9)
  - Cardiac arrest [Recovered/Resolved]
  - Loss of consciousness [Unknown]
  - Blood pressure [Unknown]
  - Blood glucose increased [Unknown]
  - Dyspnoea [Unknown]
  - Cough [Unknown]
  - Choking [Unknown]
  - Dysphagia [Unknown]
  - Wrong technique in drug usage process [Unknown]
